FAERS Safety Report 5148256-4 (Version None)
Quarter: 2006Q4

REPORT INFORMATION
  Report Type: 
  Country: None (occurrence: None)
  Receive Date: 20060918
  Receipt Date: 20060118
  Transmission Date: 20070319
  Serious: Yes (Other)
  Sender: FDA-Public Use
  Company Number: US-JNJFOC-20060204570

PATIENT
  Age: 43 Year
  Sex: Female

DRUGS (4)
  1. TOPAMAX [Suspect]
     Indication: PAIN PROPHYLAXIS
     Dosage: 25 MG, 1 IN 1 DAY - SEE IMAGE
     Dates: end: 20050501
  2. TOPAMAX [Suspect]
     Indication: PAIN PROPHYLAXIS
     Dosage: 25 MG, 1 IN 1 DAY - SEE IMAGE
     Dates: start: 20041201
  3. TOPAMAX [Suspect]
     Indication: PAIN PROPHYLAXIS
     Dosage: 25 MG, 1 IN 1 DAY - SEE IMAGE
     Dates: start: 20041201
  4. COUMADIN [Concomitant]

REACTIONS (3)
  - BLEPHAROSPASM [None]
  - CONJUNCTIVITIS ALLERGIC [None]
  - IRIDOCYCLITIS [None]
